FAERS Safety Report 5328727-8 (Version None)
Quarter: 2007Q2

REPORT INFORMATION
  Report Type: 
  Country: None (occurrence: None)
  Receive Date: 20070518
  Receipt Date: 20070514
  Transmission Date: 20071010
  Serious: Yes (Other)
  Sender: FDA-Public Use
  Company Number: IE-JNJFOC-20070504109

PATIENT
  Age: 34 Year
  Sex: Female

DRUGS (4)
  1. RISPERDAL [Suspect]
     Indication: SCHIZOPHRENIA
     Route: 048
  2. TRAZODONE HCL [Concomitant]
  3. OLANZAPINE [Concomitant]
  4. CIPROMIL [Concomitant]

REACTIONS (1)
  - BREAST ABSCESS [None]
